FAERS Safety Report 5661804-0 (Version None)
Quarter: 2008Q1

REPORT INFORMATION
  Report Type: 
  Country: None (occurrence: None)
  Receive Date: 20080306
  Receipt Date: 20080221
  Transmission Date: 20080703
  Serious: Yes (Other)
  Sender: FDA-Public Use
  Company Number: 2008S1002282

PATIENT
  Age: 65 Year
  Sex: Male

DRUGS (7)
  1. CIPROFLOXACIN [Suspect]
     Indication: LOWER RESPIRATORY TRACT INFECTION
     Dosage: 250 MG
  2. TIOTROPIU BROMIDE (TIOTROPIUM BROMIDE) [Concomitant]
  3. IRBESARTAN [Concomitant]
  4. EZETIMIBE W/SIMVASTATIN (INEGY) [Concomitant]
  5. CETIRIZINE HCL [Concomitant]
  6. ASPIRIN [Concomitant]
  7. OXPRENOLOL (OXPRENOLOL) [Concomitant]

REACTIONS (3)
  - ALANINE AMINOTRANSFERASE INCREASED [None]
  - GAMMA-GLUTAMYLTRANSFERASE INCREASED [None]
  - PSEUDOPORPHYRIA [None]
